FAERS Safety Report 12247919 (Version 2)
Quarter: 2016Q2

REPORT INFORMATION
  Report Type: Spontaneous
  Country: US (occurrence: US)
  Receive Date: 20160408
  Receipt Date: 20160419
  Transmission Date: 20160815
  Serious: No
  Sender: FDA-Public Use
  Company Number: US-TEVA-627882USA

PATIENT
  Age: 56 Year
  Sex: Female

DRUGS (9)
  1. PERCOCET [Concomitant]
     Active Substance: ACETAMINOPHEN\OXYCODONE HYDROCHLORIDE
  2. RELPAX [Concomitant]
     Active Substance: ELETRIPTAN HYDROBROMIDE
  3. ZECUITY [Suspect]
     Active Substance: SUMATRIPTAN SUCCINATE
     Indication: MIGRAINE
     Dosage: 6.5 MG / 4 HOURS
     Route: 062
     Dates: start: 20160114, end: 20160114
  4. NASONEX [Concomitant]
     Active Substance: MOMETASONE FUROATE
  5. ESTROGEL [Concomitant]
     Active Substance: ESTRADIOL
  6. PROZAC [Concomitant]
     Active Substance: FLUOXETINE HYDROCHLORIDE
  7. BACLOFEN. [Concomitant]
     Active Substance: BACLOFEN
  8. ONDANSETRON [Concomitant]
     Active Substance: ONDANSETRON
  9. TIROSINT [Concomitant]
     Active Substance: LEVOTHYROXINE SODIUM

REACTIONS (7)
  - Drug ineffective [Unknown]
  - Application site erythema [Recovered/Resolved]
  - Application site pain [Recovered/Resolved]
  - Application site pruritus [Recovered/Resolved]
  - Application site pain [Not Recovered/Not Resolved]
  - Application site paraesthesia [Unknown]
  - Device leakage [Unknown]

NARRATIVE: CASE EVENT DATE: 20160114
